FAERS Safety Report 26095771 (Version 1)
Quarter: 2025Q4

REPORT INFORMATION
  Report Type: Spontaneous
  Country: EU (occurrence: EU)
  Receive Date: 20251127
  Receipt Date: 20251127
  Transmission Date: 20260117
  Serious: Yes (Other)
  Sender: SANDOZ
  Company Number: EU-SANDOZ-SDZ2025AT088351

PATIENT
  Age: 44 Year
  Sex: Male

DRUGS (3)
  1. DIMETHYL FUMARATE [Suspect]
     Active Substance: DIMETHYL FUMARATE
     Indication: Clinically isolated syndrome
     Dosage: UNK
     Route: 065
     Dates: start: 201510
  2. GLATIRAMER ACETATE [Suspect]
     Active Substance: GLATIRAMER ACETATE
     Indication: Clinically isolated syndrome
     Dosage: UNK
     Route: 065
     Dates: start: 201505
  3. TERIFLUNOMIDE [Suspect]
     Active Substance: TERIFLUNOMIDE
     Indication: Clinically isolated syndrome
     Dosage: UNK
     Route: 065
     Dates: start: 201702

REACTIONS (5)
  - Clinically isolated syndrome [Unknown]
  - Condition aggravated [Unknown]
  - Expanded disability status scale score increased [Unknown]
  - Prostate cancer [Recovered/Resolved]
  - Lymphopenia [Unknown]

NARRATIVE: CASE EVENT DATE: 20220101
